FAERS Safety Report 11326922 (Version 1)
Quarter: 2015Q3

REPORT INFORMATION
  Report Type: Report from Study
  Country: GB (occurrence: GB)
  Receive Date: 20150731
  Receipt Date: 20150731
  Transmission Date: 20151125
  Serious: Yes (Hospitalization)
  Sender: FDA-Public Use
  Company Number: GB-PFIZER INC-2015249498

PATIENT
  Age: 59 Year
  Sex: Male
  Weight: 157.5 kg

DRUGS (16)
  1. BLINDED AXITINIB [Suspect]
     Active Substance: AXITINIB
     Dosage: 10 MG, 2X/DAY
     Dates: start: 20150629, end: 20150719
  2. ATENOLOL. [Concomitant]
     Active Substance: ATENOLOL
     Indication: HYPERTENSION
     Dosage: UNK
     Route: 048
     Dates: start: 201402
  3. DALTEPARIN [Concomitant]
     Active Substance: DALTEPARIN
     Indication: ANTICOAGULANT THERAPY
     Dosage: UNK
     Route: 058
     Dates: start: 201308
  4. CANDESARTAN [Concomitant]
     Active Substance: CANDESARTAN
     Indication: HYPERTENSION
     Dosage: UNK
     Route: 048
     Dates: start: 201402
  5. PLACEBO [Suspect]
     Active Substance: UNSPECIFIED INGREDIENT
     Indication: COLORECTAL CANCER METASTATIC
     Dosage: 5 MG, 2X/DAY
     Dates: start: 20150601, end: 20150615
  6. BLINDED AXITINIB [Suspect]
     Active Substance: AXITINIB
     Dosage: 7 MG, 2X/DAY
     Dates: start: 20150615, end: 20150629
  7. PLACEBO [Suspect]
     Active Substance: UNSPECIFIED INGREDIENT
     Dosage: 10 MG, 2X/DAY
     Dates: start: 20150629, end: 20150719
  8. BLINDED AXITINIB [Suspect]
     Active Substance: AXITINIB
     Indication: COLORECTAL CANCER METASTATIC
     Dosage: 5 MG, 2X/DAY
     Dates: start: 20150601, end: 20150615
  9. BLINDED AXITINIB [Suspect]
     Active Substance: AXITINIB
     Indication: COLORECTAL CANCER METASTATIC
     Dosage: 5 MG, 2X/DAY
     Dates: start: 20150601, end: 20150615
  10. PLACEBO [Suspect]
     Active Substance: UNSPECIFIED INGREDIENT
     Dosage: 7 MG, 2X/DAY
     Dates: start: 20150615, end: 20150629
  11. PLACEBO [Suspect]
     Active Substance: UNSPECIFIED INGREDIENT
     Dosage: 10 MG, 2X/DAY
     Dates: start: 20150629, end: 20150719
  12. AMLODIPINE [Concomitant]
     Active Substance: AMLODIPINE BESYLATE
     Indication: HYPERTENSION
     Dosage: UNK
     Route: 048
     Dates: start: 201402
  13. BLINDED AXITINIB [Suspect]
     Active Substance: AXITINIB
     Dosage: 7 MG, 2X/DAY
     Dates: start: 20150615, end: 20150629
  14. PLACEBO [Suspect]
     Active Substance: UNSPECIFIED INGREDIENT
     Indication: COLORECTAL CANCER METASTATIC
     Dosage: 5 MG, 2X/DAY
     Dates: start: 20150601, end: 20150615
  15. PLACEBO [Suspect]
     Active Substance: UNSPECIFIED INGREDIENT
     Dosage: 7 MG, 2X/DAY
     Dates: start: 20150615, end: 20150629
  16. BLINDED AXITINIB [Suspect]
     Active Substance: AXITINIB
     Dosage: 10 MG, 2X/DAY
     Dates: start: 20150629, end: 20150719

REACTIONS (2)
  - Acute kidney injury [Not Recovered/Not Resolved]
  - Sepsis [Not Recovered/Not Resolved]

NARRATIVE: CASE EVENT DATE: 20150719
